FAERS Safety Report 6240522-4 (Version None)
Quarter: 2009Q2

REPORT INFORMATION
  Report Type: 
  Country: None (occurrence: None)
  Receive Date: 20090623
  Receipt Date: 20090417
  Transmission Date: 20091009
  Serious: No
  Sender: FDA-Public Use
  Company Number: US-ASTRAZENECA-2009UW09711

PATIENT
  Age: 46 Year
  Sex: Female
  Weight: 59 kg

DRUGS (3)
  1. PULMICORT FLEXHALER [Suspect]
     Indication: ASTHMA
     Dosage: 1 PUFF
     Route: 055
     Dates: start: 20081001
  2. WELLBUTRIN [Concomitant]
  3. LEVOXYL [Concomitant]

REACTIONS (1)
  - BREAST ENLARGEMENT [None]
